FAERS Safety Report 21369705 (Version 1)
Quarter: 2022Q3

REPORT INFORMATION
  Report Type: Spontaneous
  Country: US (occurrence: US)
  Receive Date: 20220923
  Receipt Date: 20220923
  Transmission Date: 20221027
  Serious: Yes (Other)
  Sender: FDA-Public Use
  Company Number: US-UCBSA-2022055184

PATIENT
  Age: 55 Year
  Sex: Male

DRUGS (2)
  1. KEPPRA [Suspect]
     Active Substance: LEVETIRACETAM
     Indication: Product used for unknown indication
     Dosage: LOADED WITH LEVETIRACETAM 2000MG INTRAVENOUSLY
     Route: 042
  2. KEPPRA [Suspect]
     Active Substance: LEVETIRACETAM
     Indication: Product used for unknown indication
     Dosage: DAILYMAINTENANCE ORAL DOSE OF LEVETIRACETAM750MG TWICE DAILY
     Route: 048

REACTIONS (2)
  - Visual impairment [Recovered/Resolved]
  - Therapeutic product effect incomplete [Unknown]
